FAERS Safety Report 7217957-6 (Version None)
Quarter: 2011Q1

REPORT INFORMATION
  Report Type: 
  Country: None (occurrence: None)
  Receive Date: 20110110
  Receipt Date: 20110104
  Transmission Date: 20110831
  Serious: Yes (Death)
  Sender: FDA-Public Use
  Company Number: A0903816A

PATIENT
  Age: 56 Year
  Sex: Male

DRUGS (1)
  1. ARIXTRA [Suspect]
     Dosage: 10MG UNKNOWN
     Route: 058
     Dates: start: 20100809

REACTIONS (1)
  - DEATH [None]
